FAERS Safety Report 8354314-3 (Version None)
Quarter: 2012Q2

REPORT INFORMATION
  Report Type: 
  Country: None (occurrence: None)
  Receive Date: 20120511
  Receipt Date: 20120503
  Transmission Date: 20120825
  Serious: Yes (Life-Threatening, Hospitalization)
  Sender: FDA-Public Use
  Company Number: ES-BRISTOL-MYERS SQUIBB COMPANY-16571788

PATIENT
  Age: 81 Year
  Sex: Female

DRUGS (6)
  1. WARFARIN SODIUM [Interacting]
     Indication: ATRIAL FIBRILLATION
     Route: 048
     Dates: start: 20070101, end: 20090728
  2. OMEPRAZOLE [Interacting]
     Indication: PROPHYLAXIS
     Route: 048
  3. LEVOTHYROXINE SODIUM [Interacting]
     Indication: HYPOTHYROIDISM
     Dosage: TABS
     Route: 048
  4. MICARDIS [Concomitant]
     Dates: start: 20090728
  5. ACETYLSALICYLIC ACID SRT [Interacting]
     Indication: ISCHAEMIC CARDIOMYOPATHY
     Route: 048
     Dates: start: 20071101, end: 20090728
  6. PRAVASTATIN SODIUM [Suspect]
     Indication: HYPERLIPIDAEMIA
     Route: 048
     Dates: end: 20090728

REACTIONS (2)
  - DRUG INTERACTION [None]
  - LOWER GASTROINTESTINAL HAEMORRHAGE [None]
